FAERS Safety Report 24464270 (Version 2)
Quarter: 2024Q4

REPORT INFORMATION
  Report Type: Spontaneous
  Country: JP (occurrence: JP)
  Receive Date: 20241018
  Receipt Date: 20241113
  Transmission Date: 20250114
  Serious: Yes (Life-Threatening)
  Sender: ALEXION PHARMACEUTICALS
  Company Number: JP-ASTRAZENECA-240024040_013120_P_1

PATIENT
  Age: 79 Year

DRUGS (16)
  1. IMFINZI [Suspect]
     Active Substance: DURVALUMAB
     Indication: Bile duct cancer
     Dosage: 1500 MILLIGRAM, Q3W
  2. IMFINZI [Suspect]
     Active Substance: DURVALUMAB
     Dosage: 1500 MILLIGRAM, Q3W
  3. IMFINZI [Suspect]
     Active Substance: DURVALUMAB
     Dosage: 1500 MILLIGRAM, Q3W
  4. IMFINZI [Suspect]
     Active Substance: DURVALUMAB
     Dosage: 1500 MILLIGRAM, Q3W
  5. IMFINZI [Suspect]
     Active Substance: DURVALUMAB
     Dosage: 1500 MILLIGRAM, Q4W
  6. IMFINZI [Suspect]
     Active Substance: DURVALUMAB
     Dosage: 1500 MILLIGRAM, Q4W
  7. IMFINZI [Suspect]
     Active Substance: DURVALUMAB
     Dosage: 1500 MILLIGRAM, Q4W
  8. IMFINZI [Suspect]
     Active Substance: DURVALUMAB
     Dosage: 1500 MILLIGRAM, Q4W
  9. GEMCITABINE HYDROCHLORIDE [Concomitant]
     Active Substance: GEMCITABINE HYDROCHLORIDE
     Indication: Bile duct cancer
     Dosage: UNK
     Route: 065
  10. GEMCITABINE HYDROCHLORIDE [Concomitant]
     Active Substance: GEMCITABINE HYDROCHLORIDE
     Dosage: UNK
  11. GEMCITABINE HYDROCHLORIDE [Concomitant]
     Active Substance: GEMCITABINE HYDROCHLORIDE
     Dosage: UNK
     Route: 065
  12. GEMCITABINE HYDROCHLORIDE [Concomitant]
     Active Substance: GEMCITABINE HYDROCHLORIDE
     Dosage: UNK
  13. CISPLATIN [Concomitant]
     Active Substance: CISPLATIN
     Indication: Bile duct cancer
     Dosage: UNK
     Route: 065
  14. CISPLATIN [Concomitant]
     Active Substance: CISPLATIN
     Dosage: UNK
  15. CISPLATIN [Concomitant]
     Active Substance: CISPLATIN
     Dosage: UNK
     Route: 065
  16. CISPLATIN [Concomitant]
     Active Substance: CISPLATIN
     Dosage: UNK

REACTIONS (1)
  - Neutrophil count decreased [Unknown]
